FAERS Safety Report 23139416 (Version 1)
Quarter: 2023Q4

REPORT INFORMATION
  Report Type: Spontaneous
  Country: US (occurrence: US)
  Receive Date: 20231102
  Receipt Date: 20231102
  Transmission Date: 20240109
  Serious: Yes (Hospitalization, Other)
  Sender: FDA-Public Use
  Company Number: US-SUN PHARMACEUTICAL INDUSTRIES LTD-2023R1-415805

PATIENT
  Age: 22 Year

DRUGS (5)
  1. AMANTADINE [Suspect]
     Active Substance: AMANTADINE
     Indication: Post-traumatic headache
     Dosage: 100 MILLIGRAM, BID
     Route: 065
  2. BUPROPION [Suspect]
     Active Substance: BUPROPION
     Indication: Craniocerebral injury
     Dosage: 450 MILLIGRAM, DAILY
     Route: 065
  3. DULOXETINE [Suspect]
     Active Substance: DULOXETINE
     Indication: Craniocerebral injury
     Dosage: 40 MILLIGRAM, BID
     Route: 065
  4. GABAPENTIN [Suspect]
     Active Substance: GABAPENTIN
     Indication: Tremor
     Dosage: 300 MILLIGRAM, TID
     Route: 065
  5. GABAPENTIN [Suspect]
     Active Substance: GABAPENTIN
     Indication: Craniocerebral injury

REACTIONS (1)
  - Serotonin syndrome [Recovered/Resolved]
